FAERS Safety Report 22925399 (Version 2)
Quarter: 2023Q4

REPORT INFORMATION
  Report Type: Spontaneous
  Country: US (occurrence: US)
  Receive Date: 20230908
  Receipt Date: 20231020
  Transmission Date: 20240110
  Serious: No
  Sender: FDA-Public Use
  Company Number: US-AMGEN-USASP2023158640

PATIENT
  Age: 67 Year
  Sex: Female
  Weight: 58.957 kg

DRUGS (2)
  1. XGEVA [Suspect]
     Active Substance: DENOSUMAB
     Indication: Breast cancer
     Dosage: 120 MILLIGRAM, QMO
     Route: 058
  2. XGEVA [Suspect]
     Active Substance: DENOSUMAB
     Indication: Metastases to bone

REACTIONS (2)
  - Accidental exposure to product [Unknown]
  - Occupational exposure to product [Unknown]

NARRATIVE: CASE EVENT DATE: 20230828
